FAERS Safety Report 10662697 (Version 4)
Quarter: 2015Q1

REPORT INFORMATION
  Report Type: Spontaneous
  Country: US (occurrence: US)
  Receive Date: 20141218
  Receipt Date: 20150116
  Transmission Date: 20150720
  Serious: No
  Sender: FDA-Public Use
  Company Number: US-PFIZER INC-2014321102

PATIENT
  Age: 61 Year
  Sex: Female

DRUGS (11)
  1. GABAPENTINE [Concomitant]
     Active Substance: GABAPENTIN
     Dosage: UNK
     Dates: end: 201412
  2. AMBIEN [Concomitant]
     Active Substance: ZOLPIDEM TARTRATE
     Dosage: UNK
     Dates: start: 2007
  3. DEXILANT [Concomitant]
     Active Substance: DEXLANSOPRAZOLE
     Dosage: UNK
     Dates: start: 2007
  4. REVATIO [Suspect]
     Active Substance: SILDENAFIL CITRATE
     Indication: SCLERODERMA
     Dosage: 20 MG, 3X/DAY
     Route: 048
     Dates: start: 20121104
  5. SYNTHROID [Concomitant]
     Active Substance: LEVOTHYROXINE SODIUM
     Dosage: UNK
  6. VIAGRA [Suspect]
     Active Substance: SILDENAFIL CITRATE
     Indication: SCLERODERMA
     Dosage: 50 ML, 3X/DAY
     Dates: start: 2007
  7. VIAGRA [Suspect]
     Active Substance: SILDENAFIL CITRATE
     Indication: RAYNAUD^S PHENOMENON
  8. LIPITOR [Concomitant]
     Active Substance: ATORVASTATIN CALCIUM
     Dosage: UNK
     Dates: start: 2003
  9. REVATIO [Suspect]
     Active Substance: SILDENAFIL CITRATE
     Indication: RAYNAUD^S PHENOMENON
  10. NIFEDICAL [Concomitant]
     Dosage: UNK
     Dates: start: 2007
  11. CYMBALTA [Suspect]
     Active Substance: DULOXETINE HYDROCHLORIDE
     Indication: PAIN IN EXTREMITY
     Dosage: UNK
     Dates: start: 201412

REACTIONS (1)
  - Off label use [Not Recovered/Not Resolved]

NARRATIVE: CASE EVENT DATE: 2007
